FAERS Safety Report 25837392 (Version 3)
Quarter: 2025Q4

REPORT INFORMATION
  Report Type: Report from Study
  Country: AR (occurrence: AR)
  Receive Date: 20250923
  Receipt Date: 20251024
  Transmission Date: 20260117
  Serious: Yes (Death, Hospitalization, Other)
  Sender: AMGEN
  Company Number: AR-AMGEN-ARGSL2025176202

PATIENT
  Age: 76 Year
  Sex: Female

DRUGS (1)
  1. VECTIBIX [Suspect]
     Active Substance: PANITUMUMAB
     Indication: Colorectal cancer
     Dosage: UNK, 15 DAYS
     Route: 065
     Dates: start: 20250819

REACTIONS (15)
  - Pneumonia [Fatal]
  - Lung neoplasm [Fatal]
  - Blood pressure decreased [Unknown]
  - Dizziness [Unknown]
  - Asthenia [Unknown]
  - Bronchial secretion retention [Unknown]
  - Vertigo [Unknown]
  - Syncope [Unknown]
  - Malaise [Unknown]
  - Dehydration [Unknown]
  - Pruritus [Recovering/Resolving]
  - Acne [Unknown]
  - Illness [Unknown]
  - Oral pain [Unknown]
  - Bedridden [Unknown]

NARRATIVE: CASE EVENT DATE: 20250101
